FAERS Safety Report 8415077-6 (Version None)
Quarter: 2012Q2

REPORT INFORMATION
  Report Type: 
  Country: None (occurrence: None)
  Receive Date: 20120530
  Receipt Date: 20120516
  Transmission Date: 20120825
  Serious: Yes (Hospitalization)
  Sender: FDA-Public Use
  Company Number: B0803832A

PATIENT
  Age: 53 Year
  Sex: Male

DRUGS (3)
  1. CITALOPRAM HYDROBROMIDE [Suspect]
  2. TRAMADOL HCL [Suspect]
  3. BUPROPION HYDROBROMIDE [Suspect]

REACTIONS (1)
  - SEROTONIN SYNDROME [None]
